FAERS Safety Report 21507889 (Version 2)
Quarter: 2022Q4

REPORT INFORMATION
  Report Type: Report from Study
  Country: US (occurrence: US)
  Receive Date: 20221026
  Receipt Date: 20221125
  Transmission Date: 20230113
  Serious: No
  Sender: FDA-Public Use
  Company Number: US-ABBVIE-4154835

PATIENT
  Sex: Male

DRUGS (3)
  1. VENCLEXTA [Suspect]
     Active Substance: VENETOCLAX
     Indication: Chronic leukaemia in remission
     Route: 048
     Dates: start: 20220311
  2. VENCLEXTA [Suspect]
     Active Substance: VENETOCLAX
     Indication: Chronic leukaemia in remission
     Route: 048
     Dates: start: 20220302
  3. Trulicity Subcutaneous Solution Pen [Concomitant]
     Indication: Product used for unknown indication

REACTIONS (4)
  - Pain [Recovering/Resolving]
  - Neuralgia [Unknown]
  - Pain [Recovering/Resolving]
  - Pain in extremity [Recovering/Resolving]
